FAERS Safety Report 8006278-X (Version None)
Quarter: 2011Q4

REPORT INFORMATION
  Report Type: 
  Country: None (occurrence: None)
  Receive Date: 20111226
  Receipt Date: 20111221
  Transmission Date: 20120403
  Serious: Yes (Hospitalization)
  Sender: FDA-Public Use
  Company Number: US-VERTEX PHARMACEUTICALS INC.-AE-2011-005421

PATIENT
  Sex: Male
  Weight: 113.5 kg

DRUGS (6)
  1. INCIVEK [Suspect]
     Indication: HEPATITIS C
     Route: 048
     Dates: start: 20110930
  2. PEGASYS [Concomitant]
     Indication: HEPATITIS C
     Route: 058
     Dates: start: 20110930
  3. RIBAVIRIN [Concomitant]
     Indication: HEPATITIS C
     Dates: start: 20110930
  4. BACTRIM [Concomitant]
     Indication: STAPHYLOCOCCAL INFECTION
  5. METHADONE HCL [Concomitant]
  6. NEXIUM [Concomitant]

REACTIONS (4)
  - STAPHYLOCOCCAL INFECTION [None]
  - HAEMOGLOBIN DECREASED [None]
  - NAUSEA [None]
  - KNEE OPERATION [None]
